FAERS Safety Report 10762751 (Version 1)
Quarter: 2015Q1

REPORT INFORMATION
  Report Type: Report from Study
  Country: US (occurrence: US)
  Receive Date: 20150204
  Receipt Date: 20150204
  Transmission Date: 20150721
  Serious: Yes (Other)
  Sender: FDA-Public Use
  Company Number: US-PFIZER INC-2015040729

PATIENT
  Sex: Male

DRUGS (3)
  1. ORTERONEL [Suspect]
     Active Substance: ORTERONEL
     Indication: PROSTATE CANCER METASTATIC
     Dosage: 200 MG, CYCLIC
  2. PREDNISONE. [Suspect]
     Active Substance: PREDNISONE
     Indication: PROSTATE CANCER METASTATIC
     Dosage: 5 MG, CYCLIC
  3. DOCETAXEL. [Suspect]
     Active Substance: DOCETAXEL
     Indication: PROSTATE CANCER METASTATIC
     Dosage: 75 MG/M2, CYCLIC
     Route: 042

REACTIONS (2)
  - Febrile neutropenia [Unknown]
  - Pseudomonal sepsis [Unknown]
